FAERS Safety Report 8916810 (Version 1)
Quarter: 2012Q4

REPORT INFORMATION
  Report Type: 
  Country: US (occurrence: US)
  Receive Date: 20121120
  Receipt Date: 20121120
  Transmission Date: 20130627
  Serious: No
  Sender: FDA-Public Use
  Company Number: US-PFIZER INC-2012287273

PATIENT
  Age: 47 Year
  Sex: Female
  Weight: 65.31 kg

DRUGS (3)
  1. CALAN [Suspect]
     Indication: ANXIETY
     Dosage: 120 mg, 1x/day
     Route: 048
     Dates: start: 2012
  2. CALAN [Suspect]
     Indication: BLOOD PRESSURE HIGH
  3. VITAMIN C [Concomitant]
     Dosage: UNK

REACTIONS (2)
  - Nasopharyngitis [Unknown]
  - Off label use [Unknown]
